FAERS Safety Report 16698099 (Version 1)
Quarter: 2019Q3

REPORT INFORMATION
  Report Type: Spontaneous
  Country: FR (occurrence: FR)
  Receive Date: 20190813
  Receipt Date: 20190813
  Transmission Date: 20191004
  Serious: Yes (Other)
  Sender: FDA-Public Use
  Company Number: FR-PFIZER INC-2019338323

PATIENT
  Age: 38 Year
  Sex: Female

DRUGS (5)
  1. XANAX [Suspect]
     Active Substance: ALPRAZOLAM
     Dosage: 15 DF, 1X/DAY
     Route: 048
     Dates: start: 20180330, end: 20180330
  2. TOLEXINE [DOXYCYCLINE HYDROCHLORIDE] [Suspect]
     Active Substance: DOXYCYCLINE HYDROCHLORIDE
     Indication: SUICIDE ATTEMPT
     Dosage: 15 DF, 1X/DAY
     Route: 048
     Dates: start: 20180330, end: 20180330
  3. TOLEXINE [DOXYCYCLINE HYDROCHLORIDE] [Suspect]
     Active Substance: DOXYCYCLINE HYDROCHLORIDE
     Dosage: 12 DF, 1X/DAY
     Route: 048
     Dates: start: 20180330, end: 20180330
  4. XANAX [Suspect]
     Active Substance: ALPRAZOLAM
     Dosage: 15 DF, 1X/DAY
     Route: 048
     Dates: start: 20180330, end: 20180330
  5. FLUOXETINE HYDROCHLORIDE. [Suspect]
     Active Substance: FLUOXETINE HYDROCHLORIDE
     Indication: SUICIDE ATTEMPT
     Dosage: 56 DF, 1X/DAY
     Route: 048
     Dates: start: 20180330, end: 20180330

REACTIONS (4)
  - Headache [Recovered/Resolved]
  - Suicide attempt [Unknown]
  - Somnolence [Recovered/Resolved]
  - Toxicity to various agents [Recovered/Resolved]

NARRATIVE: CASE EVENT DATE: 20180330
